FAERS Safety Report 25245613 (Version 4)
Quarter: 2025Q2

REPORT INFORMATION
  Report Type: Spontaneous
  Country: JP (occurrence: JP)
  Receive Date: 20250428
  Receipt Date: 20250624
  Transmission Date: 20250716
  Serious: No
  Sender: PFIZER
  Company Number: JP-PFIZER INC-202500090119

PATIENT

DRUGS (1)
  1. PRECEDEX [Suspect]
     Active Substance: DEXMEDETOMIDINE HYDROCHLORIDE

REACTIONS (2)
  - Poor quality device used [Unknown]
  - Syringe issue [Unknown]
